FAERS Safety Report 7122760-1 (Version None)
Quarter: 2010Q4

REPORT INFORMATION
  Report Type: 
  Country: None (occurrence: None)
  Receive Date: 20101124
  Receipt Date: 20101116
  Transmission Date: 20110411
  Serious: Yes (Other)
  Sender: FDA-Public Use
  Company Number: US-ROCHE-722744

PATIENT
  Sex: Male
  Weight: 127 kg

DRUGS (2)
  1. ACCUTANE [Suspect]
     Route: 048
     Dates: start: 20020501, end: 20020811
  2. ACCUTANE [Suspect]
     Route: 048
     Dates: start: 20020812, end: 20030101

REACTIONS (7)
  - ACNE [None]
  - ANAL FISSURE [None]
  - BACK PAIN [None]
  - CROHN'S DISEASE [None]
  - GASTROINTESTINAL INJURY [None]
  - INFLAMMATORY BOWEL DISEASE [None]
  - NEPHROLITHIASIS [None]
